FAERS Safety Report 4554795-7 (Version None)
Quarter: 2005Q1

REPORT INFORMATION
  Report Type: 
  Country: None (occurrence: None)
  Receive Date: 20050114
  Receipt Date: 20041230
  Transmission Date: 20050727
  Serious: No
  Sender: FDA-Public Use
  Company Number: 404425410/PHRM2004FR03749

PATIENT
  Age: 75 Year
  Sex: Female

DRUGS (1)
  1. AK-FLUOR INJECTION, AKORN [Suspect]
     Dosage: IV
     Route: 042
     Dates: start: 20041124

REACTIONS (9)
  - BLOOD GLUCOSE INCREASED [None]
  - BLOOD PRESSURE INCREASED [None]
  - CARDIOMEGALY [None]
  - CAROTID ARTERY STENOSIS [None]
  - DEPRESSED LEVEL OF CONSCIOUSNESS [None]
  - FALL [None]
  - HYPERTONIA [None]
  - ISCHAEMIC STROKE [None]
  - MOTOR DYSFUNCTION [None]
